FAERS Safety Report 12776395 (Version 2)
Quarter: 2016Q3

REPORT INFORMATION
  Report Type: Spontaneous
  Country: FR (occurrence: FR)
  Receive Date: 20160923
  Receipt Date: 20160926
  Transmission Date: 20161109
  Serious: Yes (Hospitalization)
  Sender: FDA-Public Use
  Company Number: PHHY2016FR130898

PATIENT
  Age: 12 Year
  Sex: Male
  Weight: 45 kg

DRUGS (1)
  1. RITALINE [Suspect]
     Active Substance: METHYLPHENIDATE HYDROCHLORIDE
     Indication: INSOMNIA
     Dosage: 8 DF, UNK
     Route: 048
     Dates: start: 20160622, end: 20160623

REACTIONS (3)
  - Toxicity to various agents [Recovered/Resolved]
  - Abdominal pain [Recovered/Resolved]
  - Vertigo [Recovered/Resolved]

NARRATIVE: CASE EVENT DATE: 20160624
